FAERS Safety Report 5200301-3 (Version None)
Quarter: 2006Q4

REPORT INFORMATION
  Report Type: 
  Country: None (occurrence: None)
  Receive Date: 20061016
  Receipt Date: 20060814
  Transmission Date: 20070319
  Serious: No
  Sender: FDA-Public Use
  Company Number: 2006SP002997

PATIENT
  Age: 68 Year
  Sex: Female
  Weight: 63.5036 kg

DRUGS (10)
  1. LUNESTA [Suspect]
     Indication: SOMNOLENCE
     Dosage: 2 MG; ORAL
     Route: 048
     Dates: start: 20060808, end: 20060810
  2. ACIPHEX [Concomitant]
  3. CELEBREX [Concomitant]
  4. COLCHICINE [Concomitant]
  5. PREDNISONE TAB [Concomitant]
  6. SYNTHROID [Concomitant]
  7. BISOPROLOL FUMARATE [Concomitant]
  8. FOLIC ACID W/VITAMIN B12 [Concomitant]
  9. HYDROCODONE [Concomitant]
  10. KLONOPIN [Concomitant]

REACTIONS (5)
  - DIZZINESS [None]
  - INSOMNIA [None]
  - NERVOUSNESS [None]
  - PAIN [None]
  - PULMONARY FIBROSIS [None]
